FAERS Safety Report 5248031-6 (Version None)
Quarter: 2007Q1

REPORT INFORMATION
  Report Type: 
  Country: None (occurrence: None)
  Receive Date: 20070227
  Receipt Date: 20070216
  Transmission Date: 20070707
  Serious: Yes (Other)
  Sender: FDA-Public Use
  Company Number: JP-SANOFI-SYNTHELABO-A01200702003

PATIENT
  Age: 75 Year
  Sex: Female

DRUGS (5)
  1. F-FU [Suspect]
     Route: 042
     Dates: start: 20061127, end: 20070115
  2. ISOVORIN [Suspect]
     Route: 042
     Dates: start: 20061127, end: 20070115
  3. NASEA [Concomitant]
     Route: 042
     Dates: start: 20061127, end: 20070115
  4. DECADRON [Concomitant]
     Route: 042
     Dates: start: 20061127, end: 20070115
  5. OXALIPLATIN [Suspect]
     Indication: COLON CANCER
     Route: 042
     Dates: start: 20070115, end: 20070115

REACTIONS (1)
  - CARDIAC FAILURE [None]
